FAERS Safety Report 18247025 (Version 1)
Quarter: 2020Q3

REPORT INFORMATION
  Report Type: Spontaneous
  Country: US (occurrence: US)
  Receive Date: 20200909
  Receipt Date: 20200909
  Transmission Date: 20201103
  Serious: No
  Sender: FDA-Public Use
  Company Number: US-GLENMARK PHARMACEUTICALS-2020GMK048680

PATIENT

DRUGS (4)
  1. SERTRALINE [Concomitant]
     Active Substance: SERTRALINE HYDROCHLORIDE
     Indication: DEPRESSION
  2. SERTRALINE [Concomitant]
     Active Substance: SERTRALINE HYDROCHLORIDE
     Indication: ANXIETY
     Dosage: 75 MILLIGRAM
     Route: 065
  3. ZONISAMIDE CAPSULES USP, 50 MG [Suspect]
     Active Substance: ZONISAMIDE
     Indication: NEUROPATHY PERIPHERAL
  4. ZONISAMIDE CAPSULES USP, 50 MG [Suspect]
     Active Substance: ZONISAMIDE
     Indication: NERVE INJURY
     Dosage: 50 MILLIGRAM ONE CAPSULE AT BEDTIME FOR 1 WEEK THEN 2 CAPSULES FOR WEEK AND THEN 3 CAPSULES AT BEDTI
     Route: 048

REACTIONS (1)
  - Product use in unapproved indication [Unknown]
